FAERS Safety Report 5589295-9 (Version None)
Quarter: 2008Q1

REPORT INFORMATION
  Report Type: 
  Country: None (occurrence: None)
  Receive Date: 20080109
  Receipt Date: 20080109
  Transmission Date: 20080703
  Serious: Yes (Hospitalization)
  Sender: FDA-Public Use
  Company Number: None

PATIENT
  Age: 54 Year
  Sex: Male

DRUGS (1)
  1. NEURONTIN [Suspect]
     Dosage: 600 MG 3X DAILY ORAL
     Route: 048
     Dates: start: 20070801, end: 20071201

REACTIONS (6)
  - AGGRESSION [None]
  - AMNESIA [None]
  - CONVULSION [None]
  - DISORIENTATION [None]
  - FEELING COLD [None]
  - IMPRISONMENT [None]
